FAERS Safety Report 4804103-9 (Version None)
Quarter: 2005Q4

REPORT INFORMATION
  Report Type: 
  Country: None (occurrence: None)
  Receive Date: 20051014
  Receipt Date: 20051005
  Transmission Date: 20060501
  Serious: Yes (Hospitalization)
  Sender: FDA-Public Use
  Company Number: 2005AP000760

PATIENT
  Age: 40 Year
  Sex: Male

DRUGS (4)
  1. CITALOPRAM HYDROBROMIDE [Suspect]
     Indication: SCHIZOAFFECTIVE DISORDER
     Dosage: 80 MG; QD; D
  2. ZIPRASIDONE [Suspect]
     Indication: SCHIZOAFFECTIVE DISORDER
     Dosage: 80 MG; BID; PO
     Route: 048
  3. VALPROIC ACID [Concomitant]
  4. CLOZAPINE [Concomitant]

REACTIONS (9)
  - BLOOD CREATINE PHOSPHOKINASE INCREASED [None]
  - BLOOD GLUCOSE INCREASED [None]
  - BLOOD PRESSURE INCREASED [None]
  - MYDRIASIS [None]
  - RESPIRATORY RATE INCREASED [None]
  - SEROTONIN SYNDROME [None]
  - TACHYCARDIA [None]
  - WEIGHT INCREASED [None]
  - WHITE BLOOD CELL COUNT INCREASED [None]
